FAERS Safety Report 4680378-4 (Version None)
Quarter: 2005Q2

REPORT INFORMATION
  Report Type: 
  Country: None (occurrence: None)
  Receive Date: 20050601
  Receipt Date: 20050524
  Transmission Date: 20051028
  Serious: Yes (Hospitalization)
  Sender: FDA-Public Use
  Company Number: OMPQ-NO-0505S-0734

PATIENT
  Age: 64 Year
  Sex: Male

DRUGS (9)
  1. OMNIPAQUE 140 [Suspect]
     Indication: SCIATICA
     Dosage: 18 ML, SINGLE DOSE, I.T.
     Route: 037
     Dates: start: 20050307, end: 20050307
  2. OMNIPAQUE 140 [Suspect]
     Route: 037
  3. SIMVASTATIN [Concomitant]
  4. CAPTOPRIL [Concomitant]
  5. DOXAZOSIN [Concomitant]
  6. HYDROCHLOROTHIAZIDE [Concomitant]
  7. ACETYLSALICYLIC ACID SRT [Concomitant]
  8. IMIPRAMINE [Concomitant]
  9. GABAPENTIN [Concomitant]

REACTIONS (6)
  - COMA [None]
  - CONFUSIONAL STATE [None]
  - CSF TEST ABNORMAL [None]
  - HEADACHE [None]
  - MUSCULOSKELETAL STIFFNESS [None]
  - RESTLESSNESS [None]
